FAERS Safety Report 5468067-X (Version None)
Quarter: 2007Q3

REPORT INFORMATION
  Report Type: 
  Country: None (occurrence: None)
  Receive Date: 20070820
  Receipt Date: 20070507
  Transmission Date: 20080115
  Serious: No
  Sender: FDA-Public Use
  Company Number: WAES 0702USA04700

PATIENT
  Age: 64 Year
  Sex: Female
  Weight: 64.4108 kg

DRUGS (5)
  1. JANUVIA [Suspect]
     Indication: GLYCOSYLATED HAEMOGLOBIN INCREASED
     Dosage: 100 MG/DAILY/PO
     Route: 048
     Dates: start: 20070125, end: 20070210
  2. ACTOS [Concomitant]
  3. COZAAR [Concomitant]
  4. ASPIRIN [Concomitant]
  5. METFORMIN [Concomitant]

REACTIONS (2)
  - PRODUCTIVE COUGH [None]
  - RHINORRHOEA [None]
